FAERS Safety Report 7554993-4 (Version None)
Quarter: 2011Q2

REPORT INFORMATION
  Report Type: 
  Country: None (occurrence: None)
  Receive Date: 20110617
  Receipt Date: 20110609
  Transmission Date: 20111010
  Serious: Yes (Other)
  Sender: FDA-Public Use
  Company Number: US-PFIZER INC-2011126824

PATIENT
  Sex: Female
  Weight: 79.365 kg

DRUGS (12)
  1. IMURAN [Concomitant]
     Indication: RHEUMATOID ARTHRITIS
     Dosage: 50 MG, UNK
     Route: 048
  2. POTASSIUM [Concomitant]
     Dosage: 20 MEQ, DAILY
  3. PRISTIQ [Interacting]
     Indication: DEPRESSION
     Dosage: DAILY
     Route: 048
     Dates: start: 20100505, end: 20100526
  4. PREDNISONE [Concomitant]
     Indication: RHEUMATOID ARTHRITIS
  5. MORPHINE [Concomitant]
     Indication: PAIN
     Dosage: 100 MG, 2X/DAY
  6. IMITREX [Interacting]
     Indication: MIGRAINE
     Dosage: 50 MG, AS NEEDED
     Route: 048
  7. NEXIUM [Concomitant]
     Dosage: 40 MG, DAILY
     Route: 048
  8. EFFEXOR [Suspect]
     Indication: DEPRESSION
     Dosage: 150 MG, 2X/DAY
     Route: 048
  9. PREDNISONE [Concomitant]
     Indication: SJOGREN'S SYNDROME
     Dosage: 15 MG, DAILY
  10. ZOCOR [Concomitant]
     Indication: BLOOD CHOLESTEROL ABNORMAL
     Dosage: 20 MG, DAILY
     Route: 048
  11. REMERON [Concomitant]
     Indication: SLEEP DISORDER
     Dosage: DAILY
     Route: 048
  12. OXYCODONE [Concomitant]
     Indication: PAIN
     Dosage: UNK

REACTIONS (6)
  - SUICIDE ATTEMPT [None]
  - CONFUSIONAL STATE [None]
  - DRUG INTERACTION [None]
  - PAIN [None]
  - FEELING ABNORMAL [None]
  - FOOT FRACTURE [None]
